FAERS Safety Report 5647213-9 (Version None)
Quarter: 2008Q1

REPORT INFORMATION
  Report Type: 
  Country: None (occurrence: None)
  Receive Date: 20080228
  Receipt Date: 20080228
  Transmission Date: 20080703
  Serious: No
  Sender: FDA-Public Use
  Company Number: None

PATIENT
  Age: 52 Year
  Sex: Male

DRUGS (2)
  1. TRAMADOL HCL [Suspect]
     Indication: PAIN
     Dosage: 50MG PRN PO  : 500MG PRN PO
     Route: 048
     Dates: start: 20080207, end: 20080208
  2. TRAMADOL HCL [Suspect]
     Indication: PAIN
     Dosage: 50MG PRN PO  : 500MG PRN PO
     Route: 048
     Dates: start: 20080207

REACTIONS (3)
  - DIZZINESS [None]
  - NAUSEA [None]
  - VOMITING [None]
